FAERS Safety Report 8763931 (Version 2)
Quarter: 2012Q4

REPORT INFORMATION
  Report Type: 
  Country: DE (occurrence: DE)
  Receive Date: 20120831
  Receipt Date: 20121024
  Transmission Date: 20130627
  Serious: Yes (Death, Life-Threatening, Hospitalization, Disabling, Other)
  Sender: FDA-Public Use
  Company Number: DE-BMSGILMSD-2012-0058938

PATIENT
  Age: 64 Year
  Sex: Male

DRUGS (11)
  1. TRUVADA [Suspect]
     Indication: HIV INFECTION
     Dosage: UNK
     Route: 048
     Dates: start: 20091103, end: 20120716
  2. REYATAZ [Concomitant]
     Indication: HIV INFECTION
     Dosage: 300 mg, UNK
     Route: 048
     Dates: start: 20110831, end: 20120723
  3. NORVIR [Concomitant]
     Indication: HIV INFECTION
     Dosage: 100 mg, UNK
     Route: 048
     Dates: start: 20091103
  4. PANTOZOL [Concomitant]
     Dosage: UNK
     Route: 048
  5. ASS [Concomitant]
     Route: 048
  6. RAMIPRIL [Concomitant]
     Dosage: 5 mg, UNK
     Route: 048
  7. TARGIN [Concomitant]
     Dosage: 2 DF, UNK
     Route: 048
  8. CALCIMAGON                         /00751501/ [Concomitant]
     Dosage: 1 DF, QD
     Route: 048
  9. VIANI [Concomitant]
     Dosage: 2 DF, QD
     Route: 055
  10. SPIRIVA [Concomitant]
     Dosage: 1 DF, UNK
     Route: 055
  11. PASPERTIN                          /00041902/ [Concomitant]
     Dosage: UNK

REACTIONS (4)
  - Renal failure chronic [Fatal]
  - Osteoporosis [Unknown]
  - Multiple fractures [Unknown]
  - Renal failure acute [Not Recovered/Not Resolved]
